FAERS Safety Report 6935166-2 (Version None)
Quarter: 2010Q3

REPORT INFORMATION
  Report Type: 
  Country: None (occurrence: None)
  Receive Date: 20100822
  Receipt Date: 20100816
  Transmission Date: 20110219
  Serious: Yes (Life-Threatening, Hospitalization, Other)
  Sender: FDA-Public Use
  Company Number: PHHY2010US46808

PATIENT
  Sex: Female
  Weight: 90.26 kg

DRUGS (21)
  1. ZOMETA [Suspect]
     Indication: BREAST CANCER METASTATIC
     Dosage: 4 MG IV OVER 25 MINUTES DILUTED IN 100 ML NORMAL SALINE
     Route: 042
     Dates: start: 20100603, end: 20100603
  2. XELODA [Concomitant]
     Dosage: 2000 MG PER DAY
     Dates: start: 20100603
  3. XELODA [Concomitant]
     Dosage: 2000 MG PER DAY FROM 15-21 DAYS
  4. NEURONTIN [Concomitant]
  5. CALCIUM [Concomitant]
     Dosage: 600 MG DAILY
  6. VITAMIN E [Concomitant]
     Dosage: 400 IU, QD
  7. ASCORBIC ACID [Concomitant]
     Dosage: 500 MG DAILY
  8. PLAVIX [Concomitant]
     Dosage: 1 DF, QD
     Route: 048
  9. TOPROL-XL [Concomitant]
     Dosage: 1 DF, QD
     Route: 048
  10. LIPITOR [Concomitant]
     Dosage: 1 DF, QD
     Route: 048
  11. LEVOTHYROXINE SODIUM [Concomitant]
     Dosage: 1 DF, QD
     Route: 048
  12. LISINOPRIL [Concomitant]
     Dosage: 10 MG, QD
     Route: 048
  13. ASPIRIN [Concomitant]
     Dosage: 1 DF, QD
     Route: 048
  14. CLARITIN [Concomitant]
     Dosage: 1 DF, QD
     Route: 048
  15. GABAPENTIN [Concomitant]
     Dosage: TAKE 1 TABLET THREE TIMES DAILY FOR 30 DAYS
     Dates: start: 20100628
  16. PROCHLORPERAZINE MALEATE [Concomitant]
     Dosage: TAKE 1 TABLET ORAL Q6 HR PRN
     Route: 048
  17. RESTORIL [Concomitant]
     Dosage: 1 ORAL AT BEDTIME, PRN
     Dates: start: 20100706
  18. OXYCONTIN [Concomitant]
     Indication: NEURALGIA
     Dosage: UNK
  19. ZOFRAN [Concomitant]
     Dosage: UNK
  20. COMPAZINE [Concomitant]
     Dosage: 1 DF, PRN
  21. LYRICA [Concomitant]
     Dosage: 50 MG BID FOR 3 DAYS THEN 100 MG ORAL BID
     Route: 048
     Dates: start: 20100603

REACTIONS (27)
  - ABDOMINAL PAIN [None]
  - ARTHRALGIA [None]
  - ASCITES [None]
  - ASTHENIA [None]
  - BALANCE DISORDER [None]
  - BLOOD CREATININE INCREASED [None]
  - BONE PAIN [None]
  - BURNING SENSATION [None]
  - CONCOMITANT DISEASE AGGRAVATED [None]
  - CONSTIPATION [None]
  - DECREASED APPETITE [None]
  - DIALYSIS [None]
  - DISTURBANCE IN ATTENTION [None]
  - FATIGUE [None]
  - HYPOAESTHESIA [None]
  - INSOMNIA [None]
  - JOINT STIFFNESS [None]
  - NAUSEA [None]
  - NEUROPATHY PERIPHERAL [None]
  - NIGHT SWEATS [None]
  - PAIN IN EXTREMITY [None]
  - PARAESTHESIA [None]
  - PLEURAL EFFUSION [None]
  - RENAL FAILURE [None]
  - SEASONAL ALLERGY [None]
  - VOMITING [None]
  - WEIGHT DECREASED [None]
